FAERS Safety Report 6018970-7 (Version None)
Quarter: 2008Q4

REPORT INFORMATION
  Report Type: 
  Country: None (occurrence: None)
  Receive Date: 20081221
  Receipt Date: 20081221
  Transmission Date: 20090506
  Serious: Yes (Other)
  Sender: FDA-Public Use
  Company Number: None

PATIENT
  Sex: Female
  Weight: 54 kg

DRUGS (1)
  1. WARFARIN SODIUM [Suspect]
     Dosage: 4MG TUES AND SAT PO 5MG M,W,THURS,F, SUN PO
     Route: 048
     Dates: start: 20081214, end: 20081218

REACTIONS (1)
  - INTERNATIONAL NORMALISED RATIO INCREASED [None]
